FAERS Safety Report 25993156 (Version 1)
Quarter: 2025Q4

REPORT INFORMATION
  Report Type: Spontaneous
  Country: US (occurrence: US)
  Receive Date: 20251104
  Receipt Date: 20251104
  Transmission Date: 20260118
  Serious: Yes (Other)
  Sender: SANOFI AVENTIS
  Company Number: US-SANOFI-02703037

PATIENT
  Age: 23 Year
  Sex: Female

DRUGS (1)
  1. DUPIXENT [Suspect]
     Active Substance: DUPILUMAB
     Dosage: UNK, QOW
     Dates: start: 202501

REACTIONS (2)
  - Pneumonia [Unknown]
  - Dermatitis allergic [Unknown]

NARRATIVE: CASE EVENT DATE: 20250101
